FAERS Safety Report 20994163 (Version 1)
Quarter: 2022Q2

REPORT INFORMATION
  Report Type: Spontaneous
  Country: US (occurrence: US)
  Receive Date: 20220622
  Receipt Date: 20220622
  Transmission Date: 20220720
  Serious: Yes (Other)
  Sender: FDA-Public Use
  Company Number: US-MYLANLABS-2022M1046780

PATIENT
  Age: 45 Year
  Sex: Male

DRUGS (3)
  1. PACLITAXEL [Suspect]
     Active Substance: PACLITAXEL
     Indication: Desmoplastic melanoma
     Dosage: UNK, CYCLE, 5DL/175 MG/KG EVERY 21 DAYS
  2. CARBOPLATIN [Suspect]
     Active Substance: CARBOPLATIN
     Indication: Desmoplastic melanoma
     Dosage: UNK, CYCLE. 5DL/175 MG/KG EVERY 21 DAYS
  3. PEMBROLIZUMAB [Suspect]
     Active Substance: PEMBROLIZUMAB
     Indication: Desmoplastic melanoma
     Dosage: 200 MILLIGRAM, CYCLE, EVERY 21 DAYS

REACTIONS (1)
  - Drug ineffective [Unknown]
